FAERS Safety Report 25853664 (Version 1)
Quarter: 2025Q3

REPORT INFORMATION
  Report Type: Spontaneous
  Country: US (occurrence: US)
  Receive Date: 20250926
  Receipt Date: 20250926
  Transmission Date: 20251021
  Serious: Yes (Other)
  Sender: AMGEN
  Company Number: US-AMGEN-USASP2025186608

PATIENT
  Age: 5 Year
  Sex: Female

DRUGS (6)
  1. PREDNISONE [Suspect]
     Active Substance: PREDNISONE
     Indication: Paediatric acute-onset neuropsychiatric syndrome
     Route: 065
  2. FAMOTIDINE [Concomitant]
     Active Substance: FAMOTIDINE
     Indication: Paediatric acute-onset neuropsychiatric syndrome
  3. GUANFACINE [Concomitant]
     Active Substance: GUANFACINE
     Indication: Paediatric acute-onset neuropsychiatric syndrome
  4. COVID-19 vaccine [Concomitant]
  5. SERTRALINE [Concomitant]
     Active Substance: SERTRALINE HYDROCHLORIDE
     Indication: Paediatric acute-onset neuropsychiatric syndrome
     Route: 065
  6. AZITHROMYCIN [Concomitant]
     Active Substance: AZITHROMYCIN
     Indication: Paediatric acute-onset neuropsychiatric syndrome

REACTIONS (5)
  - Paediatric acute-onset neuropsychiatric syndrome [Recovered/Resolved]
  - Drug effective for unapproved indication [Unknown]
  - Off label use [Unknown]
  - Anger [Recovered/Resolved]
  - Obsessive-compulsive disorder [Recovered/Resolved]
